FAERS Safety Report 18438856 (Version 6)
Quarter: 2021Q1

REPORT INFORMATION
  Report Type: Report from Study
  Country: US (occurrence: US)
  Receive Date: 20201028
  Receipt Date: 20210219
  Transmission Date: 20210419
  Serious: Yes (Other)
  Sender: FDA-Public Use
  Company Number: US-OTSUKA-2020_026359

PATIENT
  Sex: Female

DRUGS (2)
  1. ASTX727 [Suspect]
     Active Substance: CEDAZURIDINE\DECITABINE
     Indication: MYELODYSPLASTIC SYNDROME
     Dosage: 135 MG (35 MG DECITABINE AND 100 MG CEDAZURIDINE) CYCLE 1
     Route: 065
  2. ASTX727 [Suspect]
     Active Substance: CEDAZURIDINE\DECITABINE
     Indication: REFRACTORY ANAEMIA WITH AN EXCESS OF BLASTS
     Dosage: 135 MG (35 MG DECITABINE AND 100 MG CEDAZURIDINE, ONCE DAILY ON DAYS 1?5 OF EACH 28?DAY CYCLE 3)
     Route: 065
     Dates: start: 20201010

REACTIONS (2)
  - Blood count abnormal [Recovering/Resolving]
  - Constipation [Unknown]
